FAERS Safety Report 4531229-X (Version None)
Quarter: 2004Q4

REPORT INFORMATION
  Report Type: 
  Country: None (occurrence: None)
  Receive Date: 20041130
  Receipt Date: 20031016
  Transmission Date: 20050328
  Serious: Yes (Other)
  Sender: FDA-Public Use
  Company Number: 2003-10-2046

PATIENT
  Sex: Female

DRUGS (1)
  1. NASONEX [Suspect]
     Indication: NASAL CONGESTION
     Dosage: 2 PUFFS BID NASAL SPRAY
     Route: 045
     Dates: start: 19990101

REACTIONS (2)
  - INTENTIONAL OVERDOSE [None]
  - PAROSMIA [None]
